FAERS Safety Report 7690728-2 (Version None)
Quarter: 2011Q3

REPORT INFORMATION
  Report Type: 
  Country: None (occurrence: None)
  Receive Date: 20110818
  Receipt Date: 20110804
  Transmission Date: 20111222
  Serious: No
  Sender: FDA-Public Use
  Company Number: US-B.I. PHARMACEUTICALS,INC./RIDGEFIELD-2011-BP-16819BP

PATIENT
  Sex: Female

DRUGS (10)
  1. CRESTOR [Concomitant]
     Indication: BLOOD CHOLESTEROL INCREASED
  2. COUMADIN [Concomitant]
  3. DIOVAN [Concomitant]
     Indication: HYPERTENSION
  4. PRADAXA [Suspect]
     Indication: ATRIAL FIBRILLATION
     Dosage: 300 MG
     Route: 048
     Dates: start: 20110607, end: 20110706
  5. PRADAXA [Suspect]
     Indication: CEREBROVASCULAR ACCIDENT PROPHYLAXIS
  6. AMIODARONE HCL [Concomitant]
     Indication: CARDIAC DISORDER
  7. ISOSORBIDE MONONITRATE [Concomitant]
     Indication: CARDIAC DISORDER
  8. CARVEDILOL [Concomitant]
     Indication: CARDIAC DISORDER
  9. SYMBICORT [Concomitant]
  10. XOPENEX [Concomitant]

REACTIONS (1)
  - OEDEMA PERIPHERAL [None]
